FAERS Safety Report 9676407 (Version 2)
Quarter: 2014Q2

REPORT INFORMATION
  Report Type: Spontaneous
  Country: US (occurrence: None)
  Receive Date: 20131106
  Receipt Date: 20140616
  Transmission Date: 20141212
  Serious: Yes (Death, Hospitalization)
  Sender: FDA-Public Use
  Company Number: 152011

PATIENT
  Sex: Female
  Weight: 80 kg

DRUGS (2)
  1. CYTARABINE [Suspect]
     Indication: ACUTE MYELOID LEUKAEMIA
     Dosage: 100/M2MG, IV DAYS 1-7 X 1-2 CYCLES
     Dates: start: 20131004
  2. DAUNORUBICIN [Concomitant]

REACTIONS (2)
  - Large intestinal obstruction [None]
  - Acute respiratory distress syndrome [None]
